FAERS Safety Report 16219459 (Version 1)
Quarter: 2019Q2

REPORT INFORMATION
  Report Type: Spontaneous
  Country: GB (occurrence: GB)
  Receive Date: 20190420
  Receipt Date: 20190420
  Transmission Date: 20190711
  Serious: Yes (Hospitalization, Other)
  Sender: FDA-Public Use
  Company Number: GB-SUN PHARMACEUTICAL INDUSTRIES LTD-2019R1-205710

PATIENT
  Age: 35 Year
  Sex: Female

DRUGS (4)
  1. RENNIE PEPPERMINT [Suspect]
     Active Substance: CALCIUM CARBONATE\MAGNESIUM CARBONATE
     Indication: ANTACID THERAPY
     Dosage: 72 CALCIUM CARBONATE AND HEAVY MAGNESIUM CARBONATE
     Route: 065
  2. PARACETAMOL [Suspect]
     Active Substance: ACETAMINOPHEN
     Indication: BACK PAIN
     Dosage: 7.5 GRAM, DAILY
  3. GAVISCON [Suspect]
     Active Substance: ALUMINUM HYDROXIDE\MAGNESIUM CARBONATE
     Indication: ANTACID THERAPY
     Dosage: 600 ML
     Route: 065
  4. IBUPROFEN. [Suspect]
     Active Substance: IBUPROFEN
     Indication: BACK PAIN
     Dosage: 6 GRAM, DAILY
     Route: 065

REACTIONS (9)
  - Epigastric discomfort [Recovering/Resolving]
  - Self-medication [Unknown]
  - Overdose [Recovering/Resolving]
  - Metabolic alkalosis [Recovering/Resolving]
  - Incorrect product administration duration [Unknown]
  - Liver disorder [Unknown]
  - Haemoglobin decreased [Recovered/Resolved]
  - Coagulopathy [Recovering/Resolving]
  - Gastric ulcer [Recovering/Resolving]
